FAERS Safety Report 7894649-1 (Version None)
Quarter: 2011Q4

REPORT INFORMATION
  Report Type: 
  Country: None (occurrence: None)
  Receive Date: 20111102
  Receipt Date: 20111019
  Transmission Date: 20120403
  Serious: Yes (Other)
  Sender: FDA-Public Use
  Company Number: 2011P1009724

PATIENT
  Age: 48 Year
  Sex: Male

DRUGS (3)
  1. FENTANYL [Suspect]
     Dosage: 100 MG, IV
     Route: 042
  2. VARENICLINE [Suspect]
     Dosage: PO
     Route: 048
     Dates: start: 20070514
  3. PROPOFOL [Suspect]
     Indication: INDUCTION OF ANAESTHESIA
     Dosage: 600 MG, IV
     Route: 042
     Dates: start: 20070530

REACTIONS (3)
  - DRUG INTERACTION [None]
  - ANXIETY [None]
  - THERAPEUTIC RESPONSE DECREASED [None]
